FAERS Safety Report 6340802-8 (Version None)
Quarter: 2009Q3

REPORT INFORMATION
  Report Type: 
  Country: None (occurrence: None)
  Receive Date: 20090904
  Receipt Date: 20090826
  Transmission Date: 20100115
  Serious: Yes (Hospitalization)
  Sender: FDA-Public Use
  Company Number: PHHY2009MX36008

PATIENT
  Age: 78 Year
  Sex: Female

DRUGS (2)
  1. DIOVAN [Suspect]
     Indication: HYPERTENSION
     Dosage: 160 MG, UNK
     Dates: start: 20051101
  2. DIOVAN [Suspect]
     Dosage: 1 DF (320 MG)/ DAY

REACTIONS (1)
  - INFARCTION [None]
